FAERS Safety Report 21378397 (Version 7)
Quarter: 2023Q1

REPORT INFORMATION
  Report Type: Report from Study
  Country: NL (occurrence: NL)
  Receive Date: 20220927
  Receipt Date: 20230307
  Transmission Date: 20230417
  Serious: Yes (Life-Threatening, Hospitalization)
  Sender: FDA-Public Use
  Company Number: NL-GBT-016751

PATIENT
  Age: 44 Year
  Sex: Female
  Weight: 61 kg

DRUGS (12)
  1. VOXELOTOR [Suspect]
     Active Substance: VOXELOTOR
     Indication: Sickle cell disease
     Dosage: ON 15-SEP-2022, THE SUBJECT RECEIVED THE LAST DOSE OF STUDY PRODUCT PRIOR TO THE EVENT ONSET.
     Route: 048
     Dates: start: 20190618, end: 20220915
  2. Hayluron/Carbom Carb981 [Concomitant]
     Indication: Meibomianitis
     Dosage: 0.15/0.15 MG/ML 4X DAY WHEN NECESSARY
     Route: 031
     Dates: start: 20191230
  3. Amoxicilline/cluvaan acid [Concomitant]
     Indication: Asplenia
     Dosage: 500/125 MG DAILY
     Route: 048
     Dates: start: 20150917
  4. Folium acid [Concomitant]
     Indication: Sickle cell disease
     Dosage: TIME INTERVAL: 0.33333333 WEEKS
     Route: 048
     Dates: start: 20190910
  5. Oxycodin [Concomitant]
     Indication: Sickle cell disease
     Route: 048
     Dates: start: 20150420
  6. POLYETHYLENE GLYCOLS [Concomitant]
     Active Substance: POLYETHYLENE GLYCOLS
     Indication: Constipation prophylaxis
     Dosage: 1 UNIT (SACHET) ONCE OR TWICE DAILY
     Route: 048
     Dates: start: 20160910
  7. ACETAMINOPHEN [Concomitant]
     Active Substance: ACETAMINOPHEN
     Indication: Sickle cell disease
     Dosage: TIME INTERVAL: AS NECESSARY
     Route: 048
     Dates: start: 20181031
  8. PHENPROCOUMON [Concomitant]
     Active Substance: PHENPROCOUMON
     Indication: Sickle cell disease
     Route: 048
     Dates: start: 20171214
  9. ETORICOXIB [Concomitant]
     Active Substance: ETORICOXIB
     Indication: Sickle cell disease
     Route: 048
     Dates: start: 20160910
  10. PANTOPRAZOLE SODIUM [Concomitant]
     Active Substance: PANTOPRAZOLE SODIUM
     Indication: Abdominal pain upper
     Route: 048
     Dates: start: 20160910
  11. HYDROXYUREA [Concomitant]
     Active Substance: HYDROXYUREA
     Indication: Sickle cell disease
     Route: 048
     Dates: start: 20190409
  12. OXYCODONE [Concomitant]
     Active Substance: OXYCODONE
     Indication: Sickle cell disease
     Dosage: TIME INTERVAL: AS NECESSARY
     Route: 048
     Dates: start: 20181031

REACTIONS (1)
  - Acute chest syndrome [Recovered/Resolved]

NARRATIVE: CASE EVENT DATE: 20220915
